FAERS Safety Report 19656540 (Version 3)
Quarter: 2021Q3

REPORT INFORMATION
  Report Type: Report from Study
  Country: GB (occurrence: GB)
  Receive Date: 20210804
  Receipt Date: 20210922
  Transmission Date: 20211014
  Serious: Yes (Hospitalization)
  Sender: FDA-Public Use
  Company Number: GB-GLAXOSMITHKLINE-GB2021GSK165158

PATIENT
  Age: 71 Year
  Sex: Male
  Weight: 52.8 kg

DRUGS (4)
  1. BORTEZOMIB. [Suspect]
     Active Substance: BORTEZOMIB
     Indication: PLASMA CELL MYELOMA
     Dosage: 2.25 MG, CYC
     Route: 058
     Dates: start: 20210730
  2. DEXAMETHASONE NON GSK [Suspect]
     Active Substance: DEXAMETHASONE
     Indication: PLASMA CELL MYELOMA
     Dosage: 20 MG, QD
     Route: 048
     Dates: start: 20210730
  3. LENALIDOMIDE [Suspect]
     Active Substance: LENALIDOMIDE
     Indication: PLASMA CELL MYELOMA
     Dosage: 1 DF, QD
     Route: 048
     Dates: start: 20210730
  4. BELANTAMAB MAFODOTIN. [Suspect]
     Active Substance: BELANTAMAB MAFODOTIN
     Indication: PLASMA CELL MYELOMA
     Dosage: 62 MG, CYC
     Route: 042
     Dates: start: 20210730

REACTIONS (3)
  - Urinary tract infection [Recovered/Resolved]
  - Vomiting [Recovered/Resolved]
  - Back pain [Not Recovered/Not Resolved]

NARRATIVE: CASE EVENT DATE: 20210731
